FAERS Safety Report 5825181-4 (Version None)
Quarter: 2008Q3

REPORT INFORMATION
  Report Type: 
  Country: None (occurrence: None)
  Receive Date: 20080729
  Receipt Date: 20080717
  Transmission Date: 20090109
  Serious: Yes (Death, Hospitalization)
  Sender: FDA-Public Use
  Company Number: PHBS2008NO04737

PATIENT
  Age: 45 Year
  Sex: Male

DRUGS (3)
  1. OXCARBAZEPINE [Suspect]
     Indication: EPILEPSY
     Dosage: 1800 MG/DAY
  2. CARBAMAZEPINE [Suspect]
     Indication: EPILEPSY
     Dosage: 1400MG/DAY
  3. VIGABATRIN [Suspect]
     Indication: EPILEPSY
     Dosage: 3000MG/DAY

REACTIONS (3)
  - HYPONATRAEMIA [None]
  - INAPPROPRIATE ANTIDIURETIC HORMONE SECRETION [None]
  - PARTIAL SEIZURES [None]
